FAERS Safety Report 4845774-0 (Version None)
Quarter: 2005Q4

REPORT INFORMATION
  Report Type: 
  Country: None (occurrence: None)
  Receive Date: 20051206
  Receipt Date: 20051128
  Transmission Date: 20060501
  Serious: Yes (Other)
  Sender: FDA-Public Use
  Company Number: ES-BRISTOL-MYERS SQUIBB COMPANY-13195839

PATIENT
  Age: 3 Year
  Sex: Male

DRUGS (8)
  1. VINCRISTINE SULFATE [Suspect]
     Indication: ACUTE LYMPHOCYTIC LEUKAEMIA
  2. SPORANOX [Suspect]
     Indication: ANTIFUNGAL PROPHYLAXIS
     Route: 048
  3. PREDNISONE [Concomitant]
  4. DAUNORUBICIN HCL [Concomitant]
  5. ASPARAGINASE [Concomitant]
     Dosage: 10000 IU/M2/DAY
  6. METHOTREXATE [Concomitant]
     Route: 037
  7. CYTARABINE [Concomitant]
     Route: 037
  8. HYDROCORTISONE [Concomitant]
     Route: 037

REACTIONS (11)
  - AREFLEXIA [None]
  - ASTHENIA [None]
  - CONSTIPATION [None]
  - DIPLEGIA [None]
  - DRUG INTERACTION [None]
  - EYELID PTOSIS [None]
  - HYPONATRAEMIA [None]
  - ILEUS PARALYTIC [None]
  - NEUROGENIC BLADDER [None]
  - ORTHOSTATIC HYPOTENSION [None]
  - PAIN IN JAW [None]
